FAERS Safety Report 4303744-5 (Version None)
Quarter: 2004Q1

REPORT INFORMATION
  Report Type: 
  Country: None (occurrence: None)
  Receive Date: 20040217
  Receipt Date: 20040130
  Transmission Date: 20041129
  Serious: Yes (Hospitalization)
  Sender: FDA-Public Use
  Company Number: 213575

PATIENT
  Age: 31 Year
  Sex: Female
  Weight: 51 kg

DRUGS (15)
  1. NOVOSEVEN [Suspect]
     Indication: FACTOR XI DEFICIENCY
     Dosage: IN TOTAL 33.6 MG, INTRAVENOUS (SEE IMAGE)
     Route: 042
     Dates: start: 20020124, end: 20020125
  2. NOVOSEVEN [Suspect]
     Indication: FACTOR XI DEFICIENCY
     Dosage: IN TOTAL 33.6 MG, INTRAVENOUS (SEE IMAGE)
     Route: 042
     Dates: start: 20020124, end: 20020125
  3. TRANEXAMIC ACID [Concomitant]
  4. AUGMENTIN [Concomitant]
  5. MORPHINE SULFATE [Concomitant]
  6. CO-DYDRAMOL (DIHYDROCODEINE BITARTRATE, PARACETAMOL) [Concomitant]
  7. DIHYDROCODEINE (DIHYDROCODEINE) [Concomitant]
  8. CEPHRADINE [Concomitant]
  9. CYCLIZINE [Concomitant]
  10. TRAMADOL [Concomitant]
  11. FENTANYL [Concomitant]
  12. PROPOFOL [Concomitant]
  13. ATRACURIUM BESYLATE [Concomitant]
  14. ATROPINE [Concomitant]
  15. NOVOSEVEN [Suspect]

REACTIONS (8)
  - EYELID PTOSIS [None]
  - HYPERSENSITIVITY [None]
  - HYPOAESTHESIA [None]
  - LATEX ALLERGY [None]
  - PARAESTHESIA [None]
  - PERIORBITAL OEDEMA [None]
  - PRURITUS [None]
  - REACTION TO DRUG EXCIPIENT [None]
